FAERS Safety Report 7635287-5 (Version None)
Quarter: 2011Q3

REPORT INFORMATION
  Report Type: 
  Country: None (occurrence: None)
  Receive Date: 20110718
  Receipt Date: 20110707
  Transmission Date: 20111222
  Serious: Yes (Other)
  Sender: FDA-Public Use
  Company Number: 11-000719

PATIENT
  Age: 37 Year
  Sex: Female
  Weight: 63.5 kg

DRUGS (3)
  1. IRON (IRON) MULTIVITAMINS (ASCORBIC ACID, ERGOCALCIFEROL, FOLIC ACID [Concomitant]
  2. LOESTRIN 24 FE [Suspect]
     Indication: MENORRHAGIA
     Dosage: 20/1000 UG, QD, ORAL
     Route: 048
     Dates: start: 20110301, end: 20110319
  3. LOESTRIN 24 FE [Suspect]
     Indication: UTERINE LEIOMYOMA
     Dosage: 20/1000 UG, QD, ORAL
     Route: 048
     Dates: start: 20110301, end: 20110319

REACTIONS (5)
  - ANAEMIA [None]
  - CONDITION AGGRAVATED [None]
  - MENOMETRORRHAGIA [None]
  - FALL [None]
  - PRESYNCOPE [None]
